FAERS Safety Report 5067744-2 (Version None)
Quarter: 2006Q3

REPORT INFORMATION
  Report Type: 
  Country: None (occurrence: None)
  Receive Date: 20060731
  Receipt Date: 20060720
  Transmission Date: 20061208
  Serious: Yes (Other)
  Sender: FDA-Public Use
  Company Number: 060119

PATIENT
  Age: 70 Year
  Sex: Female

DRUGS (2)
  1. HALFLYTELY [Suspect]
     Indication: COLONOSCOPY
     Dosage: 20MG/2L, 1X, PO
     Route: 048
     Dates: start: 20060719
  2. DILTIAZEM HYDROCHLORIDE [Concomitant]

REACTIONS (7)
  - ARRHYTHMIA [None]
  - BLOOD POTASSIUM DECREASED [None]
  - CHEST DISCOMFORT [None]
  - DEHYDRATION [None]
  - DRUG DOSE OMISSION [None]
  - HEART RATE INCREASED [None]
  - NAUSEA [None]
